FAERS Safety Report 12204714 (Version 1)
Quarter: 2016Q1

REPORT INFORMATION
  Report Type: Spontaneous
  Country: GB (occurrence: GB)
  Receive Date: 20160323
  Receipt Date: 20160323
  Transmission Date: 20160526
  Serious: Yes (Other)
  Sender: FDA-Public Use
  Company Number: GB-TEVA-644647ISR

PATIENT
  Age: 54 Year
  Sex: Female

DRUGS (1)
  1. G-CSF [Suspect]
     Active Substance: GRANULOCYTE COLONY-STIMULATING FACTOR NOS
     Indication: PERIPHERAL BLOOD STEM CELL APHERESIS
     Route: 065

REACTIONS (1)
  - IgA nephropathy [Recovered/Resolved]
